FAERS Safety Report 7289377-X (Version None)
Quarter: 2011Q1

REPORT INFORMATION
  Report Type: 
  Country: None (occurrence: None)
  Receive Date: 20110211
  Receipt Date: 20110129
  Transmission Date: 20110831
  Serious: Yes (Other)
  Sender: FDA-Public Use
  Company Number: US-CELGENEUS-163-21880-11020076

PATIENT
  Sex: Female

DRUGS (4)
  1. REVLIMID [Suspect]
     Route: 048
     Dates: start: 20100301, end: 20110117
  2. REVLIMID [Suspect]
     Indication: MULTIPLE MYELOMA
     Route: 048
     Dates: start: 20070801
  3. REVLIMID [Suspect]
     Dosage: 10-5MG
     Route: 048
     Dates: start: 20090101
  4. REVLIMID [Suspect]
     Route: 048
     Dates: start: 20070801

REACTIONS (2)
  - EYE DISORDER [None]
  - CARDIAC DISORDER [None]
